FAERS Safety Report 21936601 (Version 1)
Quarter: 2023Q1

REPORT INFORMATION
  Report Type: Spontaneous
  Country: US (occurrence: None)
  Receive Date: 20230131
  Receipt Date: 20230131
  Transmission Date: 20230417
  Serious: Yes (Other)
  Sender: FDA-Public Use
  Company Number: None

PATIENT
  Age: 55 Year
  Sex: Female
  Weight: 97.73 kg

DRUGS (1)
  1. PERTUZUMAB [Suspect]
     Active Substance: PERTUZUMAB
     Dosage: OTHER FREQUENCY : OVER 30 MINUTES;?
     Route: 042

REACTIONS (10)
  - Infusion related reaction [None]
  - Cough [None]
  - Pruritus [None]
  - Swollen tongue [None]
  - Rash erythematous [None]
  - Rash [None]
  - Tongue biting [None]
  - Rash [None]
  - Rash [None]
  - Rash [None]
